FAERS Safety Report 5278451-5 (Version None)
Quarter: 2007Q1

REPORT INFORMATION
  Report Type: 
  Country: None (occurrence: None)
  Receive Date: 20070322
  Receipt Date: 20070307
  Transmission Date: 20070707
  Serious: Yes (Other)
  Sender: FDA-Public Use
  Company Number: CIP07000477

PATIENT
  Age: 81 Year
  Sex: Female

DRUGS (7)
  1. ACTONEL [Suspect]
     Indication: OSTEOPOROSIS POSTMENOPAUSAL
     Dosage: SEE IMAGE
     Route: 048
     Dates: start: 20010101, end: 20031101
  2. ACTONEL [Suspect]
     Indication: OSTEOPOROSIS POSTMENOPAUSAL
     Dosage: SEE IMAGE
     Route: 048
     Dates: start: 20031101, end: 20050107
  3. FLUVASTATIN (FLUVASTATIN) [Concomitant]
  4. METOPROLOL TARTRATE [Concomitant]
  5. ACETAMINOPHEN [Concomitant]
  6. ASPIRIN [Concomitant]
  7. CALCIUM CARBONATE (CALCIUM CARBONATE) [Concomitant]

REACTIONS (5)
  - ANTINUCLEAR ANTIBODY POSITIVE [None]
  - GRANULOMATOUS LIVER DISEASE [None]
  - HAEMOSIDEROSIS [None]
  - HEPATIC STEATOSIS [None]
  - HEPATITIS [None]
